FAERS Safety Report 17354405 (Version 2)
Quarter: 2020Q3

REPORT INFORMATION
  Report Type: Spontaneous
  Country: US (occurrence: US)
  Receive Date: 20200131
  Receipt Date: 20200924
  Transmission Date: 20201102
  Serious: No
  Sender: FDA-Public Use
  Company Number: US-ASTRAZENECA-2020SE13903

PATIENT
  Age: 80 Year
  Sex: Male

DRUGS (1)
  1. MOVANTIK [Suspect]
     Active Substance: NALOXEGOL OXALATE
     Route: 048

REACTIONS (2)
  - Drug ineffective [Unknown]
  - Pain in extremity [Unknown]
